FAERS Safety Report 18375915 (Version 1)
Quarter: 2020Q4

REPORT INFORMATION
  Report Type: Spontaneous
  Country: US (occurrence: US)
  Receive Date: 20201010
  Receipt Date: 20201010
  Transmission Date: 20210114
  Serious: Yes (Other)
  Sender: FDA-Public Use
  Company Number: None

PATIENT
  Age: 55 Year
  Sex: Female
  Weight: 80.55 kg

DRUGS (2)
  1. BOTOX [Suspect]
     Active Substance: ONABOTULINUMTOXINA
     Indication: MIGRAINE
     Dates: start: 20200922, end: 20200922
  2. CANDASARTAN [Concomitant]

REACTIONS (2)
  - Eyelid ptosis [None]
  - Vision blurred [None]

NARRATIVE: CASE EVENT DATE: 20200922
